FAERS Safety Report 17938274 (Version 2)
Quarter: 2021Q1

REPORT INFORMATION
  Report Type: Spontaneous
  Country: US (occurrence: US)
  Receive Date: 20200624
  Receipt Date: 20210120
  Transmission Date: 20210419
  Serious: Yes (Death, Other)
  Sender: FDA-Public Use
  Company Number: US-TAKEDA-2020TUS027623

PATIENT
  Age: 70 Year
  Sex: Female

DRUGS (1)
  1. NINLARO [Suspect]
     Active Substance: IXAZOMIB CITRATE
     Indication: AMYLOIDOSIS
     Dosage: 4 MILLIGRAM
     Route: 048
     Dates: start: 20200523

REACTIONS (3)
  - Peripheral swelling [Unknown]
  - Death [Fatal]
  - Off label use [Unknown]

NARRATIVE: CASE EVENT DATE: 20200524
